FAERS Safety Report 22312146 (Version 1)
Quarter: 2023Q2

REPORT INFORMATION
  Report Type: Spontaneous
  Country: ES (occurrence: ES)
  Receive Date: 20230512
  Receipt Date: 20230512
  Transmission Date: 20230721
  Serious: Yes (Life-Threatening, Hospitalization, Other)
  Sender: FDA-Public Use
  Company Number: None

PATIENT
  Age: 68 Year
  Sex: Male
  Weight: 60 kg

DRUGS (5)
  1. DOCETAXEL [Suspect]
     Active Substance: DOCETAXEL
     Indication: Prostate cancer stage IV
     Dosage: 121 MG DOSOS UNICA
     Route: 042
     Dates: start: 20230419, end: 20230419
  2. PREDNISONE [Concomitant]
     Active Substance: PREDNISONE
     Indication: Prostate cancer stage IV
     Dosage: 5 MG AL DIA PLUS DOSIS EXTRA 10MG EL 19/04
     Route: 048
     Dates: start: 20230314
  3. ONDANSETRON [Concomitant]
     Active Substance: ONDANSETRON
     Indication: Product used for unknown indication
     Dosage: 8MG DOSIS UNICA
     Route: 042
     Dates: start: 20230419, end: 20230419
  4. ABIRATERONA (8349A) [Concomitant]
     Indication: Prostate cancer stage IV
     Dosage: 1000MG AL  DIA
     Route: 048
     Dates: start: 20230314
  5. POLARAMINE [Concomitant]
     Active Substance: DEXCHLORPHENIRAMINE MALEATE
     Indication: Product used for unknown indication
     Dosage: 5 MG DOSIS UNICA
     Route: 042
     Dates: start: 20230419, end: 20230419

REACTIONS (2)
  - Mucosal inflammation [Recovering/Resolving]
  - Agranulocytosis [Recovered/Resolved]

NARRATIVE: CASE EVENT DATE: 20230426
